FAERS Safety Report 21763027 (Version 2)
Quarter: 2023Q1

REPORT INFORMATION
  Report Type: Spontaneous
  Country: US (occurrence: US)
  Receive Date: 20221221
  Receipt Date: 20230111
  Transmission Date: 20230418
  Serious: Yes (Other)
  Sender: FDA-Public Use
  Company Number: US-ORGANON-O2212USA001676

PATIENT
  Age: 31 Year
  Sex: Female
  Weight: 76.19 kg

DRUGS (1)
  1. NEXPLANON [Suspect]
     Active Substance: ETONOGESTREL
     Indication: Contraception
     Dosage: 1 IMPLANT OF 68MG ONCE IN LEFT ARM (ROUTE OF ADMINISTRATION: IMPLANT)
     Route: 059
     Dates: start: 202102

REACTIONS (3)
  - Abortion induced [Unknown]
  - Ectopic pregnancy with contraceptive device [Recovered/Resolved]
  - Unintended pregnancy [Recovered/Resolved]

NARRATIVE: CASE EVENT DATE: 20220101
